FAERS Safety Report 9479071 (Version 2)
Quarter: 2013Q3

REPORT INFORMATION
  Report Type: Spontaneous
  Country: US (occurrence: US)
  Receive Date: 20130827
  Receipt Date: 20130827
  Transmission Date: 20140515
  Serious: Yes (Hospitalization)
  Sender: FDA-Public Use
  Company Number: US-LUNDBECK-DKLU1088770

PATIENT
  Age: 10 Year
  Sex: Female

DRUGS (2)
  1. SABRIL (TABLET) [Suspect]
     Indication: STATUS EPILEPTICUS
     Dates: start: 20100128
  2. SABRIL (TABLET) [Suspect]
     Dates: start: 2011

REACTIONS (3)
  - Mental status changes [Not Recovered/Not Resolved]
  - Hypersomnia [Not Recovered/Not Resolved]
  - Convulsion [Not Recovered/Not Resolved]
